FAERS Safety Report 6066702-9 (Version None)
Quarter: 2009Q1

REPORT INFORMATION
  Report Type: 
  Country: None (occurrence: None)
  Receive Date: 20090205
  Receipt Date: 20080304
  Transmission Date: 20090719
  Serious: No
  Sender: FDA-Public Use
  Company Number: US-ABBOTT-08P-163-0441019-00

PATIENT
  Sex: Male
  Weight: 97.61 kg

DRUGS (2)
  1. VICODIN [Suspect]
     Indication: MUSCULOSKELETAL PAIN
     Route: 048
     Dates: start: 20080129, end: 20080228
  2. BUPROPION HCL [Concomitant]
     Indication: DEPRESSION
     Route: 048
     Dates: start: 20070901

REACTIONS (1)
  - DEPRESSION [None]
